FAERS Safety Report 4879580-8 (Version None)
Quarter: 2006Q1

REPORT INFORMATION
  Report Type: 
  Country: None (occurrence: None)
  Receive Date: 20060111
  Receipt Date: 20051222
  Transmission Date: 20060701
  Serious: Yes (Life-Threatening, Hospitalization)
  Sender: FDA-Public Use
  Company Number: FR200512003692

PATIENT
  Age: 55 Year
  Sex: Male
  Weight: 44.9968 kg

DRUGS (10)
  1. PROZAC [Suspect]
     Indication: DEPRESSION
     Dosage: 20 MG OTHER
     Route: 050
  2. LANTUS [Concomitant]
  3. ASPEGIC 1000 [Concomitant]
  4. LANTUS [Concomitant]
  5. ..................... [Concomitant]
  6. ATARAX [Concomitant]
  7. FUROSEMIDE [Concomitant]
  8. FLUDROCORTISONE ACETATE [Concomitant]
  9. ESOMEPRAZOLE          (ESOMEPRAZOLE) [Concomitant]
  10. CREON [Concomitant]

REACTIONS (7)
  - BLOOD CREATININE DECREASED [None]
  - BLOOD GLUCOSE FLUCTUATION [None]
  - DRUG INTERACTION [None]
  - GAMMA-GLUTAMYLTRANSFERASE INCREASED [None]
  - HYPERGLYCAEMIA [None]
  - HYPOGLYCAEMIC COMA [None]
  - HYPOKALAEMIA [None]
